FAERS Safety Report 6452625-X (Version None)
Quarter: 2009Q4

REPORT INFORMATION
  Report Type: 
  Country: None (occurrence: None)
  Receive Date: 20091124
  Receipt Date: 20091113
  Transmission Date: 20100525
  Serious: Yes (Hospitalization)
  Sender: FDA-Public Use
  Company Number: US-BIOGENIDEC-2009BI035420

PATIENT
  Age: 55 Year
  Sex: Male

DRUGS (2)
  1. AVONEX [Suspect]
     Indication: MULTIPLE SCLEROSIS
     Route: 030
     Dates: start: 20090508
  2. AVONEX [Suspect]
     Route: 030
     Dates: start: 20040624, end: 20060921

REACTIONS (2)
  - CELLULITIS [None]
  - MULTIPLE SCLEROSIS RELAPSE [None]
